FAERS Safety Report 9259257 (Version 3)
Quarter: 2013Q2

REPORT INFORMATION
  Report Type: Spontaneous
  Country: US (occurrence: US)
  Receive Date: 20130426
  Receipt Date: 20130606
  Transmission Date: 20140414
  Serious: No
  Sender: FDA-Public Use
  Company Number: US-ASTRAZENECA-2013SE26575

PATIENT
  Age: 816 Month
  Sex: Female
  Weight: 72.6 kg

DRUGS (6)
  1. ATACAND [Suspect]
     Route: 048
  2. ATACAND HCT [Suspect]
     Indication: HYPERTENSION
     Dosage: 16 + 12.5 MG DAILY
     Route: 048
     Dates: start: 2000
  3. ATACAND HCT [Suspect]
     Indication: HYPERTENSION
     Dosage: ONE TABLET OF 16 + 12.5 MG
     Route: 048
  4. ATACAND HCT [Suspect]
     Indication: HYPERTENSION
     Dosage: ONE TABLET OF 16 + 12.5 MG
     Route: 048
  5. ASA [Concomitant]
  6. ADVIL [Concomitant]
     Indication: MIGRAINE
     Dosage: PRN

REACTIONS (9)
  - Malaise [Unknown]
  - Abdominal pain upper [Unknown]
  - Feeling abnormal [Unknown]
  - Nausea [Unknown]
  - Hyperhidrosis [Unknown]
  - Product taste abnormal [Unknown]
  - Therapeutic response unexpected [Unknown]
  - Abdominal discomfort [Unknown]
  - Adverse event [Unknown]
